FAERS Safety Report 21483693 (Version 3)
Quarter: 2022Q4

REPORT INFORMATION
  Report Type: Spontaneous
  Country: PT (occurrence: PT)
  Receive Date: 20221020
  Receipt Date: 20221222
  Transmission Date: 20230113
  Serious: Yes (Hospitalization, Other)
  Sender: FDA-Public Use
  Company Number: PT-ASPEN-GLO2022PT005765

PATIENT
  Age: 28 Year
  Sex: Female

DRUGS (3)
  1. ROPIVACAINE [Suspect]
     Active Substance: ROPIVACAINE
     Indication: Analgesic therapy
     Dosage: UNK
     Route: 065
  2. TRAMADOL [Suspect]
     Active Substance: TRAMADOL
     Indication: Analgesic therapy
     Dosage: UNK
     Route: 042
  3. SUFENTANIL [Suspect]
     Active Substance: SUFENTANIL
     Indication: Analgesic therapy
     Dosage: UNK
     Route: 065

REACTIONS (5)
  - Generalised tonic-clonic seizure [Recovered/Resolved]
  - Respiratory arrest [Recovered/Resolved]
  - Inadequate analgesia [Unknown]
  - Maternal exposure during pregnancy [Recovered/Resolved]
  - Therapeutic product effect incomplete [Unknown]
